FAERS Safety Report 10098099 (Version 1)
Quarter: 2014Q2

REPORT INFORMATION
  Report Type: Spontaneous
  Country: GB (occurrence: None)
  Receive Date: 20140421
  Receipt Date: 20140421
  Transmission Date: 20141212
  Serious: Yes (Other)
  Sender: FDA-Public Use
  Company Number: AUR-APL-2014-04690

PATIENT
  Age: 64 Year
  Sex: Female
  Weight: 58 kg

DRUGS (5)
  1. TERBINAFINE [Suspect]
     Indication: ONYCHOMYCOSIS
     Dosage: (250 MG), ORAL
     Route: 048
     Dates: start: 20140320, end: 20140321
  2. ALENDRONIC ACID (ALENDRONIC ACID) [Concomitant]
  3. NAPROXEN (NAPROXEN) [Concomitant]
  4. QVAR (BECLOMETASONE DIPROPIONATE) [Concomitant]
  5. SALBUTAMOL (SALBUTAMOL) [Concomitant]

REACTIONS (6)
  - Swelling face [None]
  - Rash macular [None]
  - Dyspnoea [None]
  - Malaise [None]
  - Paraesthesia [None]
  - Feeling hot [None]
